FAERS Safety Report 8835277 (Version 2)
Quarter: 2015Q1

REPORT INFORMATION
  Report Type: Report from Study
  Country: US (occurrence: US)
  Receive Date: 20121011
  Receipt Date: 20150201
  Transmission Date: 20150721
  Serious: Yes (Death)
  Sender: FDA-Public Use
  Company Number: US-ROCHE-1113716

PATIENT
  Sex: Male
  Weight: 37.3 kg

DRUGS (13)
  1. NUTROPIN [Suspect]
     Active Substance: SOMATROPIN
     Indication: AZOTAEMIA
     Dosage: 7 INJECTION IN A WEEK OF 0.90ML INJECTION, 6 INJECTION PER WEEK OF 0.40 ML INJECTIONS
     Route: 065
  2. EPOGEN [Concomitant]
     Active Substance: ERYTHROPOIETIN
     Route: 058
  3. PAXIL [Concomitant]
     Active Substance: PAROXETINE HYDROCHLORIDE
     Dosage: AT BED TIME
     Route: 065
  4. PREDNISONE. [Concomitant]
     Active Substance: PREDNISONE
     Route: 048
  5. ZANTAC [Concomitant]
     Active Substance: RANITIDINE HYDROCHLORIDE
     Route: 048
  6. AMBIEN [Concomitant]
     Active Substance: ZOLPIDEM TARTRATE
     Dosage: AT BED TIME
     Route: 065
  7. NUTROPIN [Suspect]
     Active Substance: SOMATROPIN
     Indication: CHRONIC KIDNEY DISEASE
     Route: 065
  8. NEORAL [Concomitant]
     Active Substance: CYCLOSPORINE
     Route: 065
  9. BACTRIM [Concomitant]
     Active Substance: SULFAMETHOXAZOLE\TRIMETHOPRIM
     Dosage: ONE AT BED TIME
     Route: 065
  10. FERROUS SULFATE [Concomitant]
     Active Substance: FERROUS SULFATE\FERROUS SULFATE, DRIED
     Route: 065
  11. LASIX [Concomitant]
     Active Substance: FUROSEMIDE
     Route: 048
  12. CELLCEPT [Concomitant]
     Active Substance: MYCOPHENOLATE MOFETIL\MYCOPHENOLATE MOFETIL HYDROCHLORIDE
     Route: 048
  13. ALDACTONE (UNITED STATES) [Concomitant]

REACTIONS (4)
  - Death [Fatal]
  - Diarrhoea [Unknown]
  - Chronic kidney disease [Unknown]
  - Abdominal pain [Unknown]
